FAERS Safety Report 16006176 (Version 2)
Quarter: 2019Q1

REPORT INFORMATION
  Report Type: Spontaneous
  Country: NL (occurrence: NL)
  Receive Date: 20190226
  Receipt Date: 20190307
  Transmission Date: 20190418
  Serious: Yes (Other)
  Sender: FDA-Public Use
  Company Number: NL-PFIZER INC-2019081606

PATIENT
  Age: 67 Year
  Sex: Female

DRUGS (4)
  1. SOMAVERT [Suspect]
     Active Substance: PEGVISOMANT
     Indication: ACROMEGALY
     Dosage: UNK
     Route: 058
     Dates: start: 200403
  2. SOMAVERT [Suspect]
     Active Substance: PEGVISOMANT
     Dosage: 10 MG, EVERY OTHER DAY
     Route: 058
     Dates: start: 201901
  3. SOMAVERT [Suspect]
     Active Substance: PEGVISOMANT
     Dosage: 10 MG, 1X/DAY
     Route: 058
     Dates: start: 201801, end: 201812
  4. WATER FOR INJECTIONS [Concomitant]
     Active Substance: WATER
     Dosage: UNK
     Route: 051

REACTIONS (2)
  - Product use issue [Not Recovered/Not Resolved]
  - Chest injury [Recovering/Resolving]

NARRATIVE: CASE EVENT DATE: 2019
